FAERS Safety Report 13744480 (Version 2)
Quarter: 2017Q3

REPORT INFORMATION
  Report Type: Report from Study
  Country: CN (occurrence: CN)
  Receive Date: 20170712
  Receipt Date: 20170720
  Transmission Date: 20171127
  Serious: Yes (Hospitalization)
  Sender: FDA-Public Use
  Company Number: CN-ROCHE-1959421

PATIENT
  Age: 57 Year
  Sex: Male
  Weight: 67.5 kg

DRUGS (20)
  1. ENTECAVIR. [Concomitant]
     Active Substance: ENTECAVIR
     Indication: HEPATITIS VIRAL
     Dosage: DISPERSIBLE TABLETS
     Route: 065
  2. TORASEMIDE [Concomitant]
     Active Substance: TORSEMIDE
     Route: 065
     Dates: start: 20170703, end: 20170710
  3. SPIRONOLACTONE. [Concomitant]
     Active Substance: SPIRONOLACTONE
     Indication: ASCITES
  4. URSODEOXYCHOLIC ACID [Concomitant]
     Active Substance: URSODIOL
     Dosage: SOFT CAPSULES
     Route: 048
     Dates: start: 20170703
  5. CELEBREX [Concomitant]
     Active Substance: CELECOXIB
     Indication: CHEST PAIN
     Route: 065
     Dates: start: 20170331, end: 20170708
  6. ITOPRIDE [Concomitant]
     Active Substance: ITOPRIDE
     Indication: DECREASED APPETITE
     Route: 048
     Dates: start: 20170703, end: 20170713
  7. METHOXYCHLOR AMINE INJECTION (UNK INGREDIENTS) [Concomitant]
     Route: 065
     Dates: start: 20170711, end: 20170711
  8. URSODEOXYCHOLIC ACID [Concomitant]
     Active Substance: URSODIOL
     Indication: BLOOD BILIRUBIN INCREASED
     Route: 065
     Dates: start: 20170623
  9. BAILING CAPSULE [Concomitant]
     Indication: CHRONIC HEPATITIS B
     Route: 065
     Dates: start: 20170710, end: 20170713
  10. SILYMARIN [Concomitant]
     Active Substance: MILK THISTLE
     Route: 065
     Dates: start: 20170512
  11. TORASEMIDE [Concomitant]
     Active Substance: TORSEMIDE
     Indication: ASCITES
     Route: 065
     Dates: start: 20170703
  12. ATEZOLIZUMAB. [Suspect]
     Active Substance: ATEZOLIZUMAB
     Indication: NEOPLASM
     Dosage: DATE OF MOST RECENT DOSE OF ATEZOLIZUMAB PRIOR TO EVENT ONSET: 23/JUN/2017
     Route: 042
     Dates: start: 20170421
  13. FUROSEMIDE. [Concomitant]
     Active Substance: FUROSEMIDE
     Indication: ASCITES
     Route: 065
     Dates: start: 20170702, end: 20170702
  14. HYDROTALCITE [Concomitant]
     Active Substance: HYDROTALCITE
     Indication: DECREASED APPETITE
     Route: 065
     Dates: start: 20170703
  15. MAGNESIUM ISOGLYCYRRHIZINATE [Concomitant]
     Active Substance: MAGNESIUM ISOGLYCYRRHIZINATE
     Route: 065
     Dates: start: 20170703
  16. GLYCEROL [Concomitant]
     Active Substance: GLYCERIN
     Indication: CONSTIPATION
     Route: 065
     Dates: start: 20170705, end: 20170705
  17. SPIRONOLACTONE. [Concomitant]
     Active Substance: SPIRONOLACTONE
     Indication: POLYURIA
     Route: 065
     Dates: start: 20170703, end: 20170713
  18. TRAMADOL. [Concomitant]
     Active Substance: TRAMADOL
     Indication: ABDOMINAL PAIN
     Route: 065
     Dates: start: 20170712
  19. SILYMARIN [Concomitant]
     Active Substance: MILK THISTLE
     Route: 048
     Dates: start: 20170703
  20. SIMETHICONE (DIMETHICONE) [Concomitant]
     Active Substance: DIMETHICONE
     Route: 065
     Dates: start: 20170705, end: 20170705

REACTIONS (1)
  - Hepatic function abnormal [Not Recovered/Not Resolved]

NARRATIVE: CASE EVENT DATE: 20170702
